FAERS Safety Report 8730155 (Version 2)
Quarter: 2012Q4

REPORT INFORMATION
  Report Type: 
  Country: US (occurrence: US)
  Receive Date: 20120817
  Receipt Date: 20120928
  Transmission Date: 20130627
  Serious: Yes (Death)
  Sender: FDA-Public Use
  Company Number: US-ELI_LILLY_AND_COMPANY-US201208005037

PATIENT
  Age: 41 Year
  Sex: Female
  Weight: 63.49 kg

DRUGS (9)
  1. GEMZAR [Suspect]
     Dosage: 1384 mg, every three weeks
     Route: 042
     Dates: start: 20110916, end: 20111118
  2. GEMZAR [Suspect]
     Dosage: 1384 mg, every three weeks
     Route: 042
     Dates: start: 20110916, end: 20111118
  3. GEMZAR [Suspect]
     Dosage: 1384 mg, every three weeks
     Route: 042
     Dates: start: 20110916, end: 20111118
  4. VINORELBINE [Concomitant]
     Dosage: UNK, unknown
     Route: 065
  5. METHADONE [Concomitant]
  6. OXYCODONE [Concomitant]
  7. DECADRON                                /CAN/ [Concomitant]
  8. FENTORA [Concomitant]
  9. NEURONTIN [Concomitant]

REACTIONS (2)
  - Malignant neoplasm progression [Fatal]
  - Off label use [Unknown]
